FAERS Safety Report 8459498-4 (Version None)
Quarter: 2012Q2

REPORT INFORMATION
  Report Type: 
  Country: None (occurrence: None)
  Receive Date: 20120622
  Receipt Date: 20120619
  Transmission Date: 20120825
  Serious: Yes (Death)
  Sender: FDA-Public Use
  Company Number: CA-ELI_LILLY_AND_COMPANY-CA201206006559

PATIENT
  Age: 59 Year
  Sex: Male

DRUGS (10)
  1. LOPRESSOR [Concomitant]
  2. PREDNISONE TAB [Concomitant]
  3. SIMVASTATIN [Concomitant]
  4. OMEPRAZOLE (PRISOLEC) [Concomitant]
  5. AZATHIOPRINE [Concomitant]
  6. FORTEO [Suspect]
     Indication: OSTEOPOROSIS
     Dosage: 20 UG, QD
     Route: 058
     Dates: start: 20101012
  7. GABAPENTIN [Concomitant]
  8. CYCLOSPORINE [Concomitant]
  9. ASPIRIN [Concomitant]
  10. RAMIPRIL [Concomitant]

REACTIONS (1)
  - CARDIAC DISORDER [None]
